FAERS Safety Report 21862992 (Version 1)
Quarter: 2023Q1

REPORT INFORMATION
  Report Type: Spontaneous
  Country: None (occurrence: CA)
  Receive Date: 20230114
  Receipt Date: 20230114
  Transmission Date: 20230417
  Serious: Yes (Hospitalization)
  Sender: FDA-Public Use
  Company Number: CA-B.Braun Medical Inc.-2136721

PATIENT
  Age: 62 Year
  Sex: Male
  Weight: 72 kg

DRUGS (15)
  1. HEPARIN SODIUM [Suspect]
     Active Substance: HEPARIN SODIUM
     Indication: Thrombosis prophylaxis
  2. ENOXAPARIN SODIUM [Suspect]
     Active Substance: ENOXAPARIN SODIUM
  3. ACETAMINOPHEN [Concomitant]
     Active Substance: ACETAMINOPHEN
  4. BACLOFEN [Concomitant]
     Active Substance: BACLOFEN
  5. CALCIUM [Concomitant]
     Active Substance: CALCIUM
  6. CASPOFUNGIN ACETATE [Concomitant]
     Active Substance: CASPOFUNGIN ACETATE
  7. DIMENHYDRINATE [Concomitant]
     Active Substance: DIMENHYDRINATE
  8. CHLORPROMAZINE [Concomitant]
     Active Substance: CHLORPROMAZINE
  9. LORAZEPAM [Concomitant]
     Active Substance: LORAZEPAM
  10. METOCLOPRAMIDE [Concomitant]
     Active Substance: METOCLOPRAMIDE
  11. ONDANSETRON [Concomitant]
     Active Substance: ONDANSETRON
  12. PIPERACILLIN AND TAZOBACTAM [Concomitant]
     Active Substance: PIPERACILLIN SODIUM\TAZOBACTAM SODIUM
  13. POLYETHYLENE GLYCOL [Concomitant]
     Active Substance: POLYETHYLENE GLYCOL
  14. PREDNISONE [Concomitant]
     Active Substance: PREDNISONE
  15. VITAMIN D [Concomitant]
     Active Substance: VITAMIN D NOS

REACTIONS (2)
  - Lower gastrointestinal haemorrhage [Recovered/Resolved]
  - Large intestinal ulcer [Recovered/Resolved]
